FAERS Safety Report 6893035-0 (Version None)
Quarter: 2010Q3

REPORT INFORMATION
  Report Type: 
  Country: None (occurrence: None)
  Receive Date: 20100731
  Receipt Date: 20090127
  Transmission Date: 20110219
  Serious: No
  Sender: FDA-Public Use
  Company Number: US-PFIZER INC-2007063869

PATIENT
  Sex: Female

DRUGS (2)
  1. AMLODIPINE BESYLATE [Suspect]
     Indication: HYPERTENSION
     Dosage: 5 MG, UNK
  2. ATENOLOL [Suspect]
     Indication: HYPERTENSION

REACTIONS (5)
  - DRUG INEFFECTIVE [None]
  - DYSPNOEA [None]
  - HEADACHE [None]
  - OEDEMA PERIPHERAL [None]
  - PAIN IN EXTREMITY [None]
